FAERS Safety Report 15408918 (Version 1)
Quarter: 2018Q3

REPORT INFORMATION
  Report Type: Report from Study
  Country: None (occurrence: US)
  Receive Date: 20180920
  Receipt Date: 20180920
  Transmission Date: 20181010
  Serious: Yes (Other)
  Sender: FDA-Public Use
  Company Number: US-ABBVIE-17K-163-1837315-00

PATIENT
  Sex: Female

DRUGS (1)
  1. HUMIRA [Suspect]
     Active Substance: ADALIMUMAB
     Indication: CROHN^S DISEASE
     Route: 058

REACTIONS (10)
  - Post procedural sepsis [Recovering/Resolving]
  - Constipation [Unknown]
  - Fistula [Unknown]
  - Tooth loss [Recovering/Resolving]
  - Migraine [Unknown]
  - Swelling [Unknown]
  - Crohn^s disease [Not Recovered/Not Resolved]
  - Anal sphincterotomy [Recovering/Resolving]
  - Anorectal stenosis [Unknown]
  - Medical device pain [Unknown]
